FAERS Safety Report 7741626 (Version 2)
Quarter: 2014Q4

REPORT INFORMATION
  Report Type: Report from Study
  Country: US (occurrence: US)
  Receive Date: 20101228
  Receipt Date: 20141002
  Transmission Date: 20150529
  Serious: Yes (Other)
  Sender: FDA-Public Use
  Company Number: US-BAYER-2010-005276

PATIENT
  Age: 58 Year
  Sex: Male
  Weight: 78.69 kg

DRUGS (1)
  1. SORAFENIB (RAF KINASE INHIBITOR) [Suspect]
     Active Substance: SORAFENIB
     Indication: TONGUE CANCER METASTATIC
     Dosage: 400 MG, QOD
     Route: 048
     Dates: start: 20090528, end: 20101207

REACTIONS (2)
  - Osteonecrosis of jaw [Not Recovered/Not Resolved]
  - Toothache [None]

NARRATIVE: CASE EVENT DATE: 201011
